FAERS Safety Report 10220682 (Version 1)
Quarter: 2014Q2

REPORT INFORMATION
  Report Type: Spontaneous
  Country: US (occurrence: None)
  Receive Date: 20140605
  Receipt Date: 20140605
  Transmission Date: 20141212
  Serious: No
  Sender: FDA-Public Use
  Company Number: None

PATIENT
  Age: 30 Year
  Sex: Female
  Weight: 86.18 kg

DRUGS (4)
  1. MIRENA [Suspect]
     Indication: CONTRACEPTION
     Dosage: INSERTED EVERY 5 YR
     Route: 067
     Dates: start: 20140206, end: 20140521
  2. SYNTHROID [Concomitant]
  3. MULTIVITAMIN [Concomitant]
  4. IRON PILL [Concomitant]

REACTIONS (2)
  - Rash [None]
  - Hypersensitivity [None]
